FAERS Safety Report 13038932 (Version 1)
Quarter: 2016Q4

REPORT INFORMATION
  Report Type: Spontaneous
  Country: US (occurrence: US)
  Receive Date: 20161216
  Receipt Date: 20161216
  Transmission Date: 20170207
  Serious: Yes (Hospitalization)
  Sender: FDA-Public Use
  Company Number: None

PATIENT
  Age: 72 Year
  Sex: Female

DRUGS (2)
  1. CAPECITABINE 500 MG MYLAN PHARMACEUTICALS INC . [Suspect]
     Active Substance: CAPECITABINE
     Indication: BREAST CANCER FEMALE
     Route: 048
     Dates: start: 20160308
  2. CAPECITABINE 500 MG MYLAN PHARMACEUTICALS INC . [Suspect]
     Active Substance: CAPECITABINE
     Indication: METASTASES TO PLEURA
     Route: 048
     Dates: start: 20160308

REACTIONS (1)
  - Pulmonary thrombosis [None]

NARRATIVE: CASE EVENT DATE: 20161215
